FAERS Safety Report 6235330-4 (Version None)
Quarter: 2009Q2

REPORT INFORMATION
  Report Type: 
  Country: None (occurrence: None)
  Receive Date: 20090615
  Receipt Date: 20090603
  Transmission Date: 20091009
  Serious: Yes (Death, Hospitalization)
  Sender: FDA-Public Use
  Company Number: 2008EN000188

PATIENT
  Age: 13 Month
  Sex: Male

DRUGS (9)
  1. ADAGEN [Suspect]
     Indication: COMBINED IMMUNODEFICIENCY
     Dosage: 25 IU/KG; IM; 10 IU/KG; IM
     Route: 030
     Dates: start: 20071227, end: 20081001
  2. ADAGEN [Suspect]
     Indication: COMBINED IMMUNODEFICIENCY
     Dosage: 25 IU/KG; IM; 10 IU/KG; IM
     Route: 030
     Dates: start: 20081001, end: 20081120
  3. RIFAMPICIN [Concomitant]
  4. ISONIAZID [Concomitant]
  5. ETHAMBUTOL HCL [Concomitant]
  6. BACTRIM [Concomitant]
  7. FLUCONAZOLE [Concomitant]
  8. CEFTAZIDIME [Concomitant]
  9. CLARITHROMYCIN [Concomitant]

REACTIONS (6)
  - BLOOD LACTATE DEHYDROGENASE INCREASED [None]
  - COMBINED IMMUNODEFICIENCY [None]
  - DISSEMINATED INTRAVASCULAR COAGULATION [None]
  - HAEMOLYTIC ANAEMIA [None]
  - MARROW HYPERPLASIA [None]
  - RENAL TUBULAR NECROSIS [None]
